FAERS Safety Report 21793852 (Version 1)
Quarter: 2022Q4

REPORT INFORMATION
  Report Type: Spontaneous
  Country: US (occurrence: None)
  Receive Date: 20221228
  Receipt Date: 20221228
  Transmission Date: 20230113
  Serious: Yes (Hospitalization)
  Sender: FDA-Public Use
  Company Number: None

PATIENT
  Age: 80 Year
  Sex: Female
  Weight: 52.1 kg

DRUGS (7)
  1. YESCARTA [Suspect]
     Active Substance: AXICABTAGENE CILOLEUCEL
     Indication: Follicular lymphoma
     Dosage: FREQUENCY : ONCE;?
     Route: 041
     Dates: start: 20220926
  2. ACTEMRA [Concomitant]
     Active Substance: TOCILIZUMAB
     Dates: end: 20221002
  3. dexAMETHasone (Decadron) injection [Concomitant]
     Dates: end: 20221015
  4. anakinra (Kineret) [Concomitant]
     Dates: end: 20221012
  5. acyclovir (Zovirax) [Concomitant]
     Dates: start: 20220926, end: 20221228
  6. levETIRAcetam (Keppra [Concomitant]
     Dates: start: 20220926, end: 20221228
  7. piperacillin-tazobactam (Zosyn [Concomitant]
     Dates: end: 20221006

REACTIONS (6)
  - Cytokine release syndrome [None]
  - Immune effector cell-associated neurotoxicity syndrome [None]
  - Fall [None]
  - Delirium [None]
  - Decreased appetite [None]
  - Decreased appetite [None]

NARRATIVE: CASE EVENT DATE: 20220926
